FAERS Safety Report 6653257-0 (Version None)
Quarter: 2010Q1

REPORT INFORMATION
  Report Type: 
  Country: None (occurrence: None)
  Receive Date: 20100326
  Receipt Date: 20100315
  Transmission Date: 20100710
  Serious: Yes (Hospitalization, Other)
  Sender: FDA-Public Use
  Company Number: CI-BRISTOL-MYERS SQUIBB COMPANY-15033798

PATIENT
  Age: 45 Year
  Sex: Male
  Weight: 66 kg

DRUGS (10)
  1. STAVUDINE [Suspect]
     Indication: HIV INFECTION
     Dates: start: 19991101
  2. DIDANOSINE [Suspect]
     Indication: HIV INFECTION
     Dosage: ALSO GIVEN IN JUL-2001, JUL-2002
     Dates: start: 19991101
  3. LAMIVUDINE [Suspect]
     Indication: HIV INFECTION
     Dosage: ALSO GIVEN FROM JAN-2002 AND FROM MAR-2003
     Dates: start: 19991001
  4. NELFINAVIR [Suspect]
     Indication: HIV INFECTION
     Dosage: ALSO GIVEN IN JUL-2001
     Dates: start: 19991101
  5. ZIDOVUDINE [Suspect]
     Indication: HIV INFECTION
     Dates: start: 20010701
  6. ABACAVIR [Suspect]
     Indication: HIV INFECTION
     Dates: start: 20031001
  7. LOPINAVIR AND RITONAVIR [Suspect]
     Indication: HIV INFECTION
     Dates: start: 20040701
  8. INDINAVIR [Suspect]
     Indication: HIV INFECTION
     Dates: start: 20020701
  9. SAQUINAVIR [Suspect]
     Indication: HIV INFECTION
     Dates: start: 20031001
  10. RITONAVIR [Suspect]
     Indication: HIV INFECTION
     Dates: start: 20031001

REACTIONS (4)
  - HYPERTRIGLYCERIDAEMIA [None]
  - LIPODYSTROPHY ACQUIRED [None]
  - NEUROPATHY PERIPHERAL [None]
  - OSTEONECROSIS [None]
